FAERS Safety Report 23846357 (Version 1)
Quarter: 2024Q2

REPORT INFORMATION
  Report Type: Spontaneous
  Country: US (occurrence: US)
  Receive Date: 20240512
  Receipt Date: 20240512
  Transmission Date: 20240716
  Serious: No
  Sender: FDA-Public Use
  Company Number: US-BRISTOL-MYERS SQUIBB COMPANY-2024-069900

PATIENT
  Age: 74 Year
  Sex: Male

DRUGS (1)
  1. LENALIDOMIDE [Suspect]
     Active Substance: LENALIDOMIDE
     Indication: Aplastic anaemia
     Dosage: TAKE 1 CAPSULE BY MOUTH EVERY DAY FOR 21 DAYS FOLLOWED BY A 7 DAY REST PERIOD EVERY 28 DAY CYCLE.
     Route: 048

REACTIONS (1)
  - Off label use [Unknown]
